FAERS Safety Report 20612413 (Version 1)
Quarter: 2022Q1

REPORT INFORMATION
  Report Type: Report from Study
  Country: US (occurrence: None)
  Receive Date: 20220318
  Receipt Date: 20220318
  Transmission Date: 20220423
  Serious: No
  Sender: FDA-Public Use
  Company Number: US-ROCHE-3047028

PATIENT
  Age: 5 Year
  Sex: Male
  Weight: 14.5 kg

DRUGS (24)
  1. OMALIZUMAB [Suspect]
     Active Substance: OMALIZUMAB
     Indication: Asthma
     Dosage: MOST RECENT DOSE ON 15/OCT/2021
     Route: 058
     Dates: start: 20200102
  2. DIPHENHYDRAMINE [Concomitant]
     Active Substance: DIPHENHYDRAMINE
     Dosage: PRN
     Route: 065
     Dates: start: 20201216, end: 20201216
  3. DIPHENHYDRAMINE [Concomitant]
     Active Substance: DIPHENHYDRAMINE
     Dosage: PRN
     Route: 065
     Dates: start: 20210319, end: 20210319
  4. DIPHENHYDRAMINE [Concomitant]
     Active Substance: DIPHENHYDRAMINE
     Dosage: PRN
     Route: 065
     Dates: start: 20210416, end: 20210416
  5. DIPHENHYDRAMINE [Concomitant]
     Active Substance: DIPHENHYDRAMINE
     Dosage: PRN
     Route: 065
     Dates: start: 20210521, end: 20210521
  6. DIPHENHYDRAMINE [Concomitant]
     Active Substance: DIPHENHYDRAMINE
     Dosage: PRN
     Route: 065
     Dates: start: 20210618, end: 20210618
  7. DIPHENHYDRAMINE [Concomitant]
     Active Substance: DIPHENHYDRAMINE
     Dosage: PRN
     Route: 065
     Dates: start: 20210716, end: 20210716
  8. DIPHENHYDRAMINE [Concomitant]
     Active Substance: DIPHENHYDRAMINE
     Dosage: PRN
     Route: 065
     Dates: start: 20210813, end: 20210813
  9. DIPHENHYDRAMINE [Concomitant]
     Active Substance: DIPHENHYDRAMINE
     Dosage: PRN
     Route: 065
     Dates: start: 20210904, end: 20210904
  10. DIPHENHYDRAMINE [Concomitant]
     Active Substance: DIPHENHYDRAMINE
     Dosage: PRN
     Route: 065
     Dates: start: 20210917, end: 20210917
  11. DIPHENHYDRAMINE [Concomitant]
     Active Substance: DIPHENHYDRAMINE
     Dosage: PRN
     Route: 065
     Dates: start: 20211015, end: 20211015
  12. DIPHENHYDRAMINE [Concomitant]
     Active Substance: DIPHENHYDRAMINE
     Dosage: PRN
     Route: 065
     Dates: start: 20211207
  13. CETIRIZINE [Concomitant]
     Active Substance: CETIRIZINE HYDROCHLORIDE
     Route: 048
     Dates: start: 20200202
  14. CETIRIZINE [Concomitant]
     Active Substance: CETIRIZINE HYDROCHLORIDE
     Route: 048
     Dates: start: 20210122, end: 20210122
  15. CETIRIZINE [Concomitant]
     Active Substance: CETIRIZINE HYDROCHLORIDE
     Route: 048
     Dates: start: 20210219, end: 20210219
  16. CETIRIZINE [Concomitant]
     Active Substance: CETIRIZINE HYDROCHLORIDE
     Route: 048
     Dates: start: 20210930, end: 20210930
  17. MUPIROCIN [Concomitant]
     Active Substance: MUPIROCIN
     Route: 065
     Dates: start: 20200518, end: 20200729
  18. MUPIROCIN [Concomitant]
     Active Substance: MUPIROCIN
     Route: 065
     Dates: start: 20210312, end: 20210415
  19. MUPIROCIN [Concomitant]
     Active Substance: MUPIROCIN
     Dates: start: 20211012
  20. IBUPROFEN [Concomitant]
     Active Substance: IBUPROFEN
     Dosage: PRN
     Dates: start: 20200111, end: 20200111
  21. IBUPROFEN [Concomitant]
     Active Substance: IBUPROFEN
     Dosage: PRN
     Dates: start: 20200111, end: 20200111
  22. AMOXICILLIN [Concomitant]
     Active Substance: AMOXICILLIN
     Dosage: Q8H
     Dates: start: 20200320, end: 20200329
  23. ACETAMINOPHEN [Concomitant]
     Active Substance: ACETAMINOPHEN
     Dosage: Q4H
     Route: 065
     Dates: start: 20201228, end: 20201231
  24. EPIPEN JR [Concomitant]
     Active Substance: EPINEPHRINE
     Route: 065

REACTIONS (1)
  - Anaphylactic reaction [Recovered/Resolved]

NARRATIVE: CASE EVENT DATE: 20211230
